FAERS Safety Report 11580720 (Version 2)
Quarter: 2015Q4

REPORT INFORMATION
  Report Type: Spontaneous
  Country: US (occurrence: US)
  Receive Date: 20150930
  Receipt Date: 20151218
  Transmission Date: 20160304
  Serious: Yes (Other)
  Sender: FDA-Public Use
  Company Number: US-ASTRAZENECA-2015SE91565

PATIENT
  Age: 17487 Day
  Sex: Female
  Weight: 117.5 kg

DRUGS (1)
  1. BYDUREON [Suspect]
     Active Substance: EXENATIDE
     Indication: TYPE 2 DIABETES MELLITUS
     Route: 058
     Dates: start: 20150815, end: 20151130

REACTIONS (7)
  - Injection site nodule [Recovering/Resolving]
  - Drug dose omission [Not Recovered/Not Resolved]
  - Blood glucose increased [Not Recovered/Not Resolved]
  - Anxiety [Recovered/Resolved]
  - Injection site erythema [Not Recovered/Not Resolved]
  - Injection site reaction [Unknown]
  - Injection site pruritus [Recovered/Resolved]

NARRATIVE: CASE EVENT DATE: 20150815
